FAERS Safety Report 12110572 (Version 6)
Quarter: 2023Q2

REPORT INFORMATION
  Report Type: Spontaneous
  Country: FR (occurrence: FR)
  Receive Date: 20160224
  Receipt Date: 20230412
  Transmission Date: 20230722
  Serious: Yes (Death, Hospitalization, Other)
  Sender: FDA-Public Use
  Company Number: FR-UCBSA-2016006209

PATIENT
  Age: 39 Year
  Sex: Female

DRUGS (15)
  1. KEPPRA [Suspect]
     Active Substance: LEVETIRACETAM
     Indication: Status epilepticus
     Dosage: 3 GRAM, ONCE DAILY (QD)
     Route: 042
     Dates: start: 20160117, end: 20160119
  2. KEPPRA [Suspect]
     Active Substance: LEVETIRACETAM
     Indication: Off label use
     Dosage: UNK
     Route: 042
     Dates: start: 20160125
  3. VIMPAT [Suspect]
     Active Substance: LACOSAMIDE
     Indication: Status epilepticus
     Dosage: ADMINISTERED VIA NASOGASTRIC PROBE.
     Route: 048
     Dates: start: 20160118, end: 20160130
  4. VIMPAT [Suspect]
     Active Substance: LACOSAMIDE
     Indication: Off label use
  5. DILANTIN [Suspect]
     Active Substance: PHENYTOIN
     Indication: Status epilepticus
     Dosage: 700 MILLIGRAM
     Route: 042
     Dates: start: 20160117, end: 20160207
  6. PROPOFOL [Suspect]
     Active Substance: PROPOFOL
     Indication: Status epilepticus
     Dosage: UNK
     Route: 042
     Dates: start: 20160117
  7. PHENOBARBITAL [Suspect]
     Active Substance: PHENOBARBITAL
     Indication: Status epilepticus
     Dosage: UNK
     Route: 048
     Dates: start: 20160117, end: 20160119
  8. PHENOBARBITAL [Suspect]
     Active Substance: PHENOBARBITAL
     Dosage: UNK FOR 24 HOURS
     Route: 048
     Dates: start: 20160130, end: 2016
  9. PHENOBARBITAL [Suspect]
     Active Substance: PHENOBARBITAL
     Dosage: THERE WAS LOAD CHARGE OF PHENOBARBITAL THEN THE DOSE WAS MAINTAINED.
     Route: 048
     Dates: start: 20160205
  10. RIVOTRIL [Suspect]
     Active Substance: CLONAZEPAM
     Indication: Status epilepticus
     Dosage: 2 MILLIGRAM, ONCE DAILY (QD)
     Route: 048
     Dates: start: 20160118, end: 20160118
  11. RIVOTRIL [Suspect]
     Active Substance: CLONAZEPAM
     Dosage: 4 MILLIGRAM, ONCE DAILY (QD)
     Route: 048
     Dates: start: 20160119
  12. TRILEPTAL [Suspect]
     Active Substance: OXCARBAZEPINE
     Indication: Status epilepticus
     Dosage: ADMINISTERED VIA NASOGASTRIC PROBE AND DISCONTINUED DUE TO ONSET OF LIVER DAMAGE (UNAVAILABLE VALUES
     Route: 048
     Dates: start: 20160118, end: 20160204
  13. Loxen [Concomitant]
     Indication: Blood pressure abnormal
     Dosage: UNK
     Dates: start: 2016
  14. AUGMENTIN [Concomitant]
     Active Substance: AMOXICILLIN\CLAVULANATE POTASSIUM
     Indication: Product used for unknown indication
     Dosage: UNK, FOR 8 DAYS
     Dates: start: 201602
  15. MAGNESIUM SULFATE [Concomitant]
     Active Substance: MAGNESIUM SULFATE
     Indication: Product used for unknown indication
     Dosage: UNK

REACTIONS (13)
  - Pre-eclampsia [Fatal]
  - Pyrexia [Fatal]
  - Lung disorder [Fatal]
  - Septic shock [Fatal]
  - Multiple organ dysfunction syndrome [Fatal]
  - Agranulocytosis [Fatal]
  - Liver injury [Fatal]
  - Transaminases increased [Fatal]
  - Blood alkaline phosphatase increased [Fatal]
  - Gamma-glutamyltransferase increased [Fatal]
  - Premature delivery [Unknown]
  - Maternal exposure during pregnancy [Unknown]
  - Off label use [Unknown]

NARRATIVE: CASE EVENT DATE: 20160117
